FAERS Safety Report 6547763-7 (Version None)
Quarter: 2010Q1

REPORT INFORMATION
  Report Type: 
  Country: None (occurrence: None)
  Receive Date: 20100124
  Receipt Date: 20091022
  Transmission Date: 20100710
  Serious: No
  Sender: FDA-Public Use
  Company Number: US-ALEXION-A200900870

PATIENT
  Sex: Male

DRUGS (11)
  1. SOLIRIS [Suspect]
     Indication: PAROXYSMAL NOCTURNAL HAEMOGLOBINURIA
     Dosage: 600 MG, UNK
     Route: 042
     Dates: start: 20090317, end: 20090317
  2. SOLIRIS [Suspect]
     Dosage: UNK
     Route: 042
  3. ANDROGEL [Concomitant]
     Route: 062
  4. COUMADIN [Concomitant]
  5. FOLIC ACID [Concomitant]
  6. HYDROCODONE [Concomitant]
  7. NEXIUM [Concomitant]
  8. CENTRUM                            /00554501/ [Concomitant]
  9. IRON [Concomitant]
  10. VITAMIN A [Concomitant]
  11. ZOLOFT [Concomitant]

REACTIONS (1)
  - INFLUENZA [None]
